FAERS Safety Report 8020937-4 (Version None)
Quarter: 2011Q4

REPORT INFORMATION
  Report Type: 
  Country: None (occurrence: None)
  Receive Date: 20111229
  Receipt Date: 20111229
  Transmission Date: 20120403
  Serious: Yes (Other)
  Sender: FDA-Public Use
  Company Number: None

PATIENT
  Sex: Female
  Weight: 58.0604 kg

DRUGS (2)
  1. FOSAMAX PLUS D [Suspect]
     Dosage: 1 TABLET 1 X A WEEK
     Dates: end: 20060501
  2. FOSAMAX PLUS D [Suspect]
     Dosage: 1 TABLET 1 X A WEEK
     Dates: start: 20060901, end: 20111107

REACTIONS (2)
  - HIP FRACTURE [None]
  - FEMUR FRACTURE [None]
